FAERS Safety Report 11626076 (Version 2)
Quarter: 2015Q4

REPORT INFORMATION
  Report Type: Spontaneous
  Country: GB (occurrence: GB)
  Receive Date: 20151013
  Receipt Date: 20151109
  Transmission Date: 20160304
  Serious: Yes (Other)
  Sender: FDA-Public Use
  Company Number: GB-AMGEN-GBRSP2015082808

PATIENT
  Age: 74 Year
  Sex: Male

DRUGS (1)
  1. ENBREL [Suspect]
     Active Substance: ETANERCEPT
     Indication: RHEUMATOID ARTHRITIS
     Dosage: 50 MG, UNK
     Route: 065
     Dates: start: 20150721

REACTIONS (9)
  - Joint stiffness [Unknown]
  - Testicular pain [Unknown]
  - Lower respiratory tract infection [Unknown]
  - Arthralgia [Unknown]
  - Skin irritation [Unknown]
  - Acne [Recovering/Resolving]
  - Rash papular [Recovering/Resolving]
  - Contusion [Recovered/Resolved]
  - Eyelid rash [Unknown]

NARRATIVE: CASE EVENT DATE: 2015
